FAERS Safety Report 17182868 (Version 1)
Quarter: 2019Q4

REPORT INFORMATION
  Report Type: Spontaneous
  Country: US (occurrence: US)
  Receive Date: 20191127
  Receipt Date: 20191127
  Transmission Date: 20200122
  Serious: Yes (Hospitalization)
  Sender: FDA-Public Use
  Company Number: None

PATIENT
  Age: 59 Year
  Sex: Male

DRUGS (12)
  1. HUMIRA [Suspect]
     Active Substance: ADALIMUMAB
     Indication: ANKYLOSING SPONDYLITIS
     Dosage: ?          OTHER FREQUENCY:EVERY 14 DAYS;?
     Route: 058
     Dates: start: 20160206
  2. TRAMADOL HCL [Concomitant]
     Active Substance: TRAMADOL HYDROCHLORIDE
  3. PANTOPRAZOLE [Concomitant]
     Active Substance: PANTOPRAZOLE
  4. AMIODARONE [Concomitant]
     Active Substance: AMIODARONE
  5. FUROSEMIDE. [Concomitant]
     Active Substance: FUROSEMIDE
  6. CLONIDINE. [Concomitant]
     Active Substance: CLONIDINE
  7. NIFEDIPINE. [Concomitant]
     Active Substance: NIFEDIPINE
  8. QUETIAPINE. [Concomitant]
     Active Substance: QUETIAPINE
  9. BUDESONIDE. [Concomitant]
     Active Substance: BUDESONIDE
  10. HYDRALAZINE [Concomitant]
     Active Substance: HYDRALAZINE HYDROCHLORIDE
  11. MEGESTROL [Concomitant]
     Active Substance: MEGESTROL
  12. METOPROL TAR [Concomitant]

REACTIONS (2)
  - Pneumonia [None]
  - Chronic obstructive pulmonary disease [None]

NARRATIVE: CASE EVENT DATE: 20191126
